FAERS Safety Report 6934968-6 (Version None)
Quarter: 2010Q3

REPORT INFORMATION
  Report Type: 
  Country: None (occurrence: None)
  Receive Date: 20100821
  Receipt Date: 20100817
  Transmission Date: 20110219
  Serious: Yes (Death)
  Sender: FDA-Public Use
  Company Number: CHPA2010US13225

PATIENT
  Sex: Female

DRUGS (1)
  1. KERI ORIGINAL (NCH) [Suspect]
     Indication: RASH
     Dosage: UNK, UNK

REACTIONS (2)
  - DEATH [None]
  - OFF LABEL USE [None]
